FAERS Safety Report 24607369 (Version 2)
Quarter: 2025Q1

REPORT INFORMATION
  Report Type: Spontaneous
  Country: JP (occurrence: JP)
  Receive Date: 20241112
  Receipt Date: 20250221
  Transmission Date: 20250408
  Serious: Yes (Death, Hospitalization, Other)
  Sender: BRISTOL-MYERS SQUIBB COMPANY
  Company Number: JP-BRISTOL-MYERS SQUIBB COMPANY-2024-175325

PATIENT
  Age: 8 Decade
  Sex: Male

DRUGS (1)
  1. REBLOZYL [Suspect]
     Active Substance: LUSPATERCEPT-AAMT
     Indication: Myelodysplastic syndrome
     Route: 058
     Dates: start: 20240719, end: 20240920

REACTIONS (3)
  - Iron overload [Unknown]
  - Cardiac failure [Recovered/Resolved]
  - Gut derived infection [Fatal]

NARRATIVE: CASE EVENT DATE: 20240920
